FAERS Safety Report 9518814 (Version 1)
Quarter: 2013Q1

REPORT INFORMATION
  Report Type: Spontaneous
  Country: US (occurrence: None)
  Receive Date: 20130305
  Receipt Date: 20130305
  Transmission Date: 20140127
  Serious: Yes (Other)
  Sender: FDA-Public Use
  Company Number: 163-21880-12121178

PATIENT
  Age: 80 Year
  Sex: Male
  Weight: 68.04 kg

DRUGS (9)
  1. REVLIMID (LENALIDOMIDE) (25 MILLIGRAM, CAPSULES) [Suspect]
     Indication: WALDENSTROM^S MACROGLOBULINAEMIA
     Route: 048
     Dates: start: 20110929, end: 20121205
  2. AMLODIPINE (AMLODIPINE) (UNKNOWN) [Concomitant]
  3. METOPROLOL (METOPROLOL) (UNKNOWN) [Concomitant]
  4. FLOMAX (UNKNOWN) [Concomitant]
  5. FISH OIL (FISH OIL) (UNKNOWN) [Concomitant]
  6. B12 (UNKNOWN) [Concomitant]
  7. MVI (MVI) (UNKNOWN) [Concomitant]
  8. VIT C (ASCORBIC ACID) (UNKNOWN) [Concomitant]
  9. VIT E (UNKNOWN) [Concomitant]

REACTIONS (2)
  - Dizziness [None]
  - Syncope [None]
